FAERS Safety Report 5484762-0 (Version None)
Quarter: 2007Q4

REPORT INFORMATION
  Report Type: 
  Country: None (occurrence: None)
  Receive Date: 20071012
  Receipt Date: 20071004
  Transmission Date: 20080405
  Serious: Yes (Hospitalization, Other)
  Sender: FDA-Public Use
  Company Number: US-PFIZER INC-2007061823

PATIENT
  Sex: Male
  Weight: 63.5 kg

DRUGS (5)
  1. GEODON [Suspect]
     Indication: HALLUCINATION
     Route: 048
     Dates: start: 20070721, end: 20070901
  2. SINEMET [Concomitant]
     Dosage: TEXT:50/200 TWICE/DAY, 25/100 5 TIMES/DAY
     Route: 048
  3. PLETAL [Concomitant]
  4. NAMENDA [Concomitant]
  5. PLAVIX [Concomitant]
     Dosage: DAILY DOSE:75MG

REACTIONS (6)
  - CYSTITIS [None]
  - FEELING ABNORMAL [None]
  - GAIT DISTURBANCE [None]
  - HALLUCINATION [None]
  - MENTAL STATUS CHANGES [None]
  - SOMNOLENCE [None]
